FAERS Safety Report 10704186 (Version 1)
Quarter: 2015Q1

REPORT INFORMATION
  Report Type: Spontaneous
  Country: US (occurrence: US)
  Receive Date: 20150112
  Receipt Date: 20150112
  Transmission Date: 20150721
  Serious: Yes (Other)
  Sender: FDA-Public Use
  Company Number: US-GLAXOSMITHKLINE-US2014GSK046325

PATIENT
  Age: 73 Year
  Sex: Female

DRUGS (24)
  1. PROAIR HFA [Concomitant]
     Active Substance: ALBUTEROL SULFATE
  2. POTASSIUM CHLORIDE. [Concomitant]
     Active Substance: POTASSIUM CHLORIDE
  3. ALBUTEROL. [Concomitant]
     Active Substance: ALBUTEROL
  4. OXYCODONE [Concomitant]
     Active Substance: OXYCODONE
  5. NITROGLYCERIN. [Concomitant]
     Active Substance: NITROGLYCERIN
  6. RESTASIS [Concomitant]
     Active Substance: CYCLOSPORINE
  7. TRAZODONE [Concomitant]
     Active Substance: TRAZODONE HYDROCHLORIDE
  8. MAGNESIUM OXIDE. [Concomitant]
     Active Substance: MAGNESIUM OXIDE
  9. ZINC [Concomitant]
     Active Substance: ZINC\ZINC CHLORIDE
  10. ASPIRIN. [Concomitant]
     Active Substance: ASPIRIN
  11. LEVOTHYROXINE [Concomitant]
     Active Substance: LEVOTHYROXINE
  12. CALCIUM [Concomitant]
     Active Substance: CALCIUM
  13. CLORAZEPATE [Concomitant]
     Active Substance: CLORAZEPATE DIPOTASSIUM
  14. PROTONIX [Concomitant]
     Active Substance: PANTOPRAZOLE SODIUM
  15. AZELASTINE [Concomitant]
     Active Substance: AZELASTINE
  16. MIRALAX [Concomitant]
     Active Substance: POLYETHYLENE GLYCOL 3350
  17. MONTELUKAST [Concomitant]
     Active Substance: MONTELUKAST SODIUM
  18. SIMVASTATIN. [Concomitant]
     Active Substance: SIMVASTATIN
  19. IMDUR [Concomitant]
     Active Substance: ISOSORBIDE MONONITRATE
  20. ANORO ELLIPTA [Suspect]
     Active Substance: UMECLIDINIUM BROMIDE\VILANTEROL TRIFENATATE
     Indication: UPPER RESPIRATORY TRACT INFECTION
     Dosage: UNK, 1D
     Route: 055
     Dates: start: 201410
  21. IPRATROPIUM [Concomitant]
     Active Substance: IPRATROPIUM
  22. DONEPEZIL [Concomitant]
     Active Substance: DONEPEZIL
  23. ENTOCORT [Concomitant]
     Active Substance: BUDESONIDE
  24. LOSARTAN [Concomitant]
     Active Substance: LOSARTAN

REACTIONS (3)
  - Neck pain [Not Recovered/Not Resolved]
  - Eye pain [Recovering/Resolving]
  - Glaucoma [Unknown]

NARRATIVE: CASE EVENT DATE: 201410
